FAERS Safety Report 9370734 (Version 1)
Quarter: 2013Q2

REPORT INFORMATION
  Report Type: Spontaneous
  Country: FR (occurrence: FR)
  Receive Date: 20130626
  Receipt Date: 20130626
  Transmission Date: 20140414
  Serious: Yes (Hospitalization)
  Sender: FDA-Public Use
  Company Number: FR-TEVA-414105ISR

PATIENT
  Age: 63 Year
  Sex: Male

DRUGS (9)
  1. FUROSEMIDE TEVA 40 MG [Suspect]
     Dosage: 40 MILLIGRAM DAILY; DIVISIBLE TABLETS
     Route: 048
     Dates: start: 20130512
  2. FUROSEMIDE TEVA 40 MG [Suspect]
     Dosage: 60 MILLIGRAM DAILY; (40MG +20MG)
     Route: 048
     Dates: end: 20130610
  3. KARDEGIC [Concomitant]
     Dosage: 75
  4. TICAGRELOR [Concomitant]
     Dosage: 90 1-0-1
  5. AMIODARONE [Concomitant]
     Dosage: 200
  6. PROCORALAN [Concomitant]
     Dosage: 5 1-0-1
  7. LASILIX [Concomitant]
     Dosage: 40 1-0.5-0
  8. DIFFU K [Concomitant]
  9. PANTOPRAZOLE [Concomitant]

REACTIONS (6)
  - Cardiac failure [Not Recovered/Not Resolved]
  - Dyspnoea [Not Recovered/Not Resolved]
  - Asthenia [Unknown]
  - Somnolence [Not Recovered/Not Resolved]
  - Dysuria [Unknown]
  - Restless legs syndrome [Unknown]
